FAERS Safety Report 9347334 (Version 2)
Quarter: 2013Q3

REPORT INFORMATION
  Report Type: Spontaneous
  Country: MX (occurrence: MX)
  Receive Date: 20130613
  Receipt Date: 20130711
  Transmission Date: 20140515
  Serious: Yes (Hospitalization, Other)
  Sender: FDA-Public Use
  Company Number: MX-PFIZER INC-2013178026

PATIENT
  Age: 59 Year
  Sex: Male
  Weight: 98 kg

DRUGS (4)
  1. LYRICA [Suspect]
     Indication: PARALYSIS
     Dosage: 1 TABLET, 2X/DAY DURING 3 DAYS
     Route: 048
     Dates: start: 201305
  2. LYRICA [Suspect]
     Dosage: 1 TABLET IN THE MORNING AND 2 TABLETS IN THE NIGHT.
     Route: 048
     Dates: start: 201305
  3. VITAMIN B12 [Concomitant]
     Dosage: 5 APPLICATIONS (INJECTIONS) ALTERNATED (ONE DAY YES, ONE DAY NOT)
     Dates: start: 20130520
  4. BENEXOL B12 [Concomitant]
     Dosage: 1 DF, UNK
     Route: 048
     Dates: start: 20130520

REACTIONS (7)
  - Off label use [Unknown]
  - Femoral artery occlusion [Recovering/Resolving]
  - Paraesthesia [Unknown]
  - Hypoaesthesia [Recovering/Resolving]
  - Musculoskeletal stiffness [Unknown]
  - Impaired driving ability [Unknown]
  - Nervousness [Recovering/Resolving]
